FAERS Safety Report 20327633 (Version 1)
Quarter: 2022Q1

REPORT INFORMATION
  Report Type: Spontaneous
  Country: US (occurrence: None)
  Receive Date: 20220111
  Receipt Date: 20220111
  Transmission Date: 20220423
  Serious: No
  Sender: FDA-Public Use
  Company Number: None

PATIENT
  Age: 57 Year
  Sex: Female

DRUGS (11)
  1. BAMLANIVIMAB [Suspect]
     Active Substance: BAMLANIVIMAB
     Indication: COVID-19
     Dosage: FREQUENCY : ONCE;?
     Route: 042
     Dates: start: 20211223, end: 20211223
  2. ETESEVIMAB [Suspect]
     Active Substance: ETESEVIMAB
     Indication: COVID-19
     Dosage: FREQUENCY : ONCE;?
     Route: 042
     Dates: start: 20211223, end: 20211223
  3. BENZONATATE [Concomitant]
     Active Substance: BENZONATATE
  4. NAPROXEN [Concomitant]
     Active Substance: NAPROXEN
  5. ALBUTEROL [Concomitant]
     Active Substance: ALBUTEROL
  6. BECLOMETHASONE [Concomitant]
     Active Substance: BECLOMETHASONE
  7. codiene-guafenesin [Concomitant]
  8. CHLORTHALIDONE [Concomitant]
     Active Substance: CHLORTHALIDONE
  9. LISINOPRIL [Concomitant]
     Active Substance: LISINOPRIL
  10. BISOPROLOL [Concomitant]
     Active Substance: BISOPROLOL
  11. CLONIDINE [Concomitant]
     Active Substance: CLONIDINE

REACTIONS (2)
  - Anaphylactic reaction [None]
  - Hypokalaemia [None]

NARRATIVE: CASE EVENT DATE: 20211223
